FAERS Safety Report 7522583-5 (Version None)
Quarter: 2011Q2

REPORT INFORMATION
  Report Type: 
  Country: None (occurrence: None)
  Receive Date: 20110603
  Receipt Date: 20110526
  Transmission Date: 20111010
  Serious: Yes (Disabling)
  Sender: FDA-Public Use
  Company Number: DE-ALLERGAN-1105613US

PATIENT
  Age: 68 Year
  Sex: Female
  Weight: 58 kg

DRUGS (5)
  1. TROSPIUM CHLORIDE [Suspect]
     Dosage: 10 MG, BID
     Dates: end: 20091109
  2. IODIDE TABLETS [Concomitant]
     Indication: PRODUCT USED FOR UNKNOWN INDICATION
  3. TROSPIUM CHLORIDE [Suspect]
     Indication: BLADDER IRRITATION
     Dosage: 40 MG, QD
     Dates: start: 20091109
  4. TROSPIUM CHLORIDE [Suspect]
     Dosage: 5 MG, BID
     Dates: start: 20090406
  5. KLIOGEST [Concomitant]
     Indication: PRODUCT USED FOR UNKNOWN INDICATION

REACTIONS (5)
  - DIARRHOEA [None]
  - THERAPEUTIC RESPONSE DECREASED [None]
  - VISION BLURRED [None]
  - BLINDNESS TRANSIENT [None]
  - VISUAL IMPAIRMENT [None]
